FAERS Safety Report 7362468-0 (Version None)
Quarter: 2011Q1

REPORT INFORMATION
  Report Type: 
  Country: None (occurrence: None)
  Receive Date: 20110318
  Receipt Date: 20110309
  Transmission Date: 20110831
  Serious: Yes (Other)
  Sender: FDA-Public Use
  Company Number: ES-GENENTECH-312600

PATIENT
  Sex: Male

DRUGS (2)
  1. RITUXIMAB [Suspect]
     Indication: EXTRANODAL MARGINAL ZONE B-CELL LYMPHOMA (MALT TYPE)
     Dosage: 375 MG/M2, Q28D
     Route: 042
     Dates: start: 20100309, end: 20100601
  2. BENDAMUSTINE [Suspect]
     Indication: EXTRANODAL MARGINAL ZONE B-CELL LYMPHOMA (MALT TYPE)
     Dosage: 90 MG/M2, Q28D
     Route: 042
     Dates: start: 20100305

REACTIONS (1)
  - SQUAMOUS CELL CARCINOMA [None]
